FAERS Safety Report 7162172-8 (Version None)
Quarter: 2010Q4

REPORT INFORMATION
  Report Type: 
  Country: None (occurrence: None)
  Receive Date: 20101215
  Receipt Date: 20101206
  Transmission Date: 20110411
  Serious: Yes (Hospitalization, Other)
  Sender: FDA-Public Use
  Company Number: DE-ROCHE-736079

PATIENT
  Sex: Male
  Weight: 77 kg

DRUGS (4)
  1. BEVACIZUMAB [Suspect]
     Indication: BRONCHIAL CARCINOMA
     Dosage: 12 CYCLES IN COMBI WITH OXALIPLATIN AND PACLITAXEL
     Route: 065
     Dates: start: 20091217, end: 20100928
  2. BEVACIZUMAB [Suspect]
     Dosage: 1 APPLICATION AS MONOTHERAPY RECEIVED ON 18 NOV 2010
     Route: 065
     Dates: start: 20101118
  3. PACLITAXEL [Suspect]
     Indication: BRONCHIAL CARCINOMA
     Route: 065
     Dates: start: 20091217, end: 20100928
  4. OXALIPLATIN [Suspect]
     Indication: BRONCHIAL CARCINOMA
     Route: 065
     Dates: start: 20091217, end: 20100928

REACTIONS (4)
  - MALIGNANT NEOPLASM PROGRESSION [None]
  - MUCOSAL INFLAMMATION [None]
  - PANCYTOPENIA [None]
  - SEPSIS [None]
